FAERS Safety Report 20815333 (Version 1)
Quarter: 2022Q2

REPORT INFORMATION
  Report Type: Spontaneous
  Country: FR (occurrence: FR)
  Receive Date: 20220511
  Receipt Date: 20220511
  Transmission Date: 20220721
  Serious: Yes (Other)
  Sender: FDA-Public Use
  Company Number: None

PATIENT
  Age: 52 Year
  Sex: Male

DRUGS (4)
  1. CLOZAPINE [Suspect]
     Active Substance: CLOZAPINE
     Indication: Product administration error
     Dosage: 100 MILLIGRAM, TOTAL
     Route: 048
     Dates: start: 20220224, end: 20220224
  2. CYAMEMAZINE [Suspect]
     Active Substance: CYAMEMAZINE
     Indication: Product administration error
     Dosage: 25 MILLIGRAM, TOTAL
     Route: 048
     Dates: start: 20220224, end: 20220224
  3. PIPAMPERONE [Suspect]
     Active Substance: PIPAMPERONE
     Indication: Product administration error
     Dosage: 20 MILLIGRAM, TOTAL (SCORED TABLET)
     Route: 048
     Dates: start: 20220224, end: 20220224
  4. OXAZEPAM [Suspect]
     Active Substance: OXAZEPAM
     Indication: Product administration error
     Dosage: 50 MILLIGRAM, TOTAL (SCORED TABLET)
     Route: 048
     Dates: start: 20220224, end: 20220224

REACTIONS (3)
  - Hypotension [Recovering/Resolving]
  - Altered state of consciousness [Recovering/Resolving]
  - Wrong patient received product [Recovered/Resolved]

NARRATIVE: CASE EVENT DATE: 20220224
